FAERS Safety Report 5646019-4 (Version None)
Quarter: 2008Q1

REPORT INFORMATION
  Report Type: 
  Country: None (occurrence: None)
  Receive Date: 20080229
  Receipt Date: 20080219
  Transmission Date: 20080703
  Serious: Yes (Other)
  Sender: FDA-Public Use
  Company Number: US-PFIZER INC-2008015924

PATIENT
  Sex: Female
  Weight: 68.181 kg

DRUGS (3)
  1. LYRICA [Suspect]
     Indication: ARTHRALGIA
     Dates: start: 20070713, end: 20070715
  2. NORCO [Concomitant]
     Indication: PAIN
  3. NAPROXEN [Concomitant]

REACTIONS (4)
  - CONVULSION [None]
  - FEELING ABNORMAL [None]
  - HEAD DISCOMFORT [None]
  - HEADACHE [None]
